FAERS Safety Report 10625640 (Version 1)
Quarter: 2014Q4

REPORT INFORMATION
  Report Type: Spontaneous
  Country: US (occurrence: None)
  Receive Date: 20141202
  Receipt Date: 20141202
  Transmission Date: 20150529
  Serious: No
  Sender: FDA-Public Use
  Company Number: 2014-00102M

PATIENT
  Age: 62 Year
  Sex: Female
  Weight: 79.38 kg

DRUGS (3)
  1. ZICAM COLD REMEDY LIQUI-LOZ [Suspect]
     Active Substance: ZINC ACETATE\ZINC GLUCONATE
     Indication: NASOPHARYNGITIS
     Dosage: TWO LOZENGES
     Route: 048
     Dates: start: 20141111, end: 20141116
  2. ZICAM COLD REMEDY LIQUI-LOZ [Suspect]
     Active Substance: ZINC ACETATE\ZINC GLUCONATE
     Indication: PROPHYLAXIS
     Dosage: TWO LOZENGES
     Route: 048
     Dates: start: 20141111, end: 20141116
  3. LOVASTATIN. [Concomitant]
     Active Substance: LOVASTATIN

REACTIONS (2)
  - Headache [None]
  - Ageusia [None]

NARRATIVE: CASE EVENT DATE: 20141116
